FAERS Safety Report 26145528 (Version 2)
Quarter: 2025Q4

REPORT INFORMATION
  Report Type: Spontaneous
  Country: EU (occurrence: EU)
  Receive Date: 20251211
  Receipt Date: 20251222
  Transmission Date: 20260117
  Serious: Yes (Hospitalization, Other)
  Sender: TEVA
  Company Number: EU-TEVA-VS-3399902

PATIENT
  Age: 73 Year
  Sex: Female

DRUGS (2)
  1. PREDNISOLONE [Suspect]
     Active Substance: PREDNISOLONE
     Indication: Neutrophilic dermatosis
     Route: 048
  2. DAPSONE [Suspect]
     Active Substance: DAPSONE
     Indication: Neutrophilic dermatosis
     Route: 065

REACTIONS (4)
  - Rebound effect [Unknown]
  - Rash papular [Unknown]
  - Rash [Unknown]
  - Respiratory failure [Unknown]
